FAERS Safety Report 9346668 (Version 1)
Quarter: 2013Q2

REPORT INFORMATION
  Report Type: Spontaneous
  Country: GB (occurrence: GB)
  Receive Date: 20130613
  Receipt Date: 20130613
  Transmission Date: 20140414
  Serious: Yes (Hospitalization)
  Sender: FDA-Public Use
  Company Number: GB-PFIZER INC-2013170879

PATIENT
  Age: 64 Year
  Sex: Female

DRUGS (4)
  1. ZOLEDRONIC ACID [Suspect]
     Indication: OFF LABEL USE
     Dosage: UNK
     Route: 042
  2. ZOLEDRONIC ACID [Suspect]
     Indication: PROPHYLAXIS
  3. PAMIDRONATE DISODIUM [Suspect]
     Indication: OFF LABEL USE
     Dosage: UNK
     Route: 042
  4. PAMIDRONATE DISODIUM [Suspect]
     Indication: PROPHYLAXIS
     Dosage: UNK

REACTIONS (2)
  - Atypical femur fracture [Unknown]
  - Off label use [Unknown]
